FAERS Safety Report 9839307 (Version 1)
Quarter: 2014Q1

REPORT INFORMATION
  Report Type: Spontaneous
  Country: GB (occurrence: GB)
  Receive Date: 20140123
  Receipt Date: 20140123
  Transmission Date: 20141002
  Serious: Yes (Other)
  Sender: FDA-Public Use
  Company Number: PHFR2014GB000799

PATIENT
  Age: 7 Year
  Sex: Male
  Weight: 24.8 kg

DRUGS (2)
  1. METHYLPHENIDATE [Suspect]
     Indication: ATTENTION DEFICIT/HYPERACTIVITY DISORDER
     Dosage: 30 MG, UNK
     Route: 048
  2. METHYLPHENIDATE [Suspect]
     Dosage: UNK (DOSE REDUCED)
     Route: 048

REACTIONS (1)
  - Haematuria [Recovered/Resolved]
